FAERS Safety Report 6044787-3 (Version None)
Quarter: 2009Q1

REPORT INFORMATION
  Report Type: 
  Country: None (occurrence: None)
  Receive Date: 20090120
  Receipt Date: 20090116
  Transmission Date: 20090719
  Serious: Yes (Hospitalization, Disabling)
  Sender: FDA-Public Use
  Company Number: PHHO2007BE14193

PATIENT
  Sex: Male
  Weight: 73.8 kg

DRUGS (4)
  1. ZOLEDRONIC ACID [Suspect]
     Indication: MULTIPLE MYELOMA
     Dosage: 4MG EVERY 3-4 WEEKS
     Route: 042
     Dates: start: 20030101, end: 20070314
  2. CALCIUM [Concomitant]
  3. VITAMIN D [Concomitant]
  4. DOPAMINE HCL [Concomitant]
     Dosage: UNK
     Dates: start: 20061020, end: 20070824

REACTIONS (6)
  - FATIGUE [None]
  - GINGIVAL PAIN [None]
  - MEDICAL DEVICE COMPLICATION [None]
  - MOUTH ULCERATION [None]
  - ORAL DISORDER [None]
  - OSTEONECROSIS [None]
